FAERS Safety Report 11563794 (Version 2)
Quarter: 2015Q3

REPORT INFORMATION
  Report Type: Report from Study
  Country: US (occurrence: US)
  Receive Date: 20150928
  Receipt Date: 20150929
  Transmission Date: 20151125
  Serious: Yes (Hospitalization)
  Sender: FDA-Public Use
  Company Number: US-009507513-1509USA010243

PATIENT
  Age: 34 Year
  Sex: Male
  Weight: 125.7 kg

DRUGS (10)
  1. AVASTIN [Suspect]
     Active Substance: BEVACIZUMAB
     Indication: GLIOBLASTOMA MULTIFORME
     Dosage: 10 MG/KG, QOW
     Route: 042
     Dates: start: 20150831, end: 20150914
  2. TYLENOL [Concomitant]
     Active Substance: ACETAMINOPHEN
  3. FIORICET [Concomitant]
     Active Substance: ACETAMINOPHEN\BUTALBITAL\CAFFEINE
  4. HYDRALAZINE [Concomitant]
     Active Substance: HYDRALAZINE HYDROCHLORIDE
     Dosage: UNK
  5. PEMBROLIZUMAB. [Suspect]
     Active Substance: PEMBROLIZUMAB
     Indication: GLIOBLASTOMA MULTIFORME
     Dosage: UNK
     Route: 042
  6. HYDROMORPHONE [Concomitant]
     Active Substance: HYDROMORPHONE
  7. ENOXAPARIN SODIUM. [Concomitant]
     Active Substance: ENOXAPARIN SODIUM
     Dosage: UNK
  8. SUMATRIPTAN SUCCINATE. [Concomitant]
     Active Substance: SUMATRIPTAN SUCCINATE
  9. ONDANSETRON [Concomitant]
     Active Substance: ONDANSETRON
  10. VIMPAT [Concomitant]
     Active Substance: LACOSAMIDE

REACTIONS (2)
  - Hypertension [Unknown]
  - Hypertension [Recovering/Resolving]

NARRATIVE: CASE EVENT DATE: 20150917
